FAERS Safety Report 10648479 (Version 1)
Quarter: 2014Q4

REPORT INFORMATION
  Report Type: Spontaneous
  Country: US (occurrence: None)
  Receive Date: 20141211
  Receipt Date: 20141211
  Transmission Date: 20150529
  Serious: Yes (Death, Life-Threatening)
  Sender: FDA-Public Use
  Company Number: None

PATIENT
  Age: 36 Year
  Sex: Female
  Weight: 104.33 kg

DRUGS (4)
  1. TEGRETOL [Suspect]
     Active Substance: CARBAMAZEPINE
     Indication: BIPOLAR DISORDER
     Dates: start: 20131001, end: 20131217
  2. TEGRETOL [Suspect]
     Active Substance: CARBAMAZEPINE
     Indication: MENTAL DISORDER
     Dates: start: 20131001, end: 20131217
  3. ZOFRAN [Suspect]
     Active Substance: ONDANSETRON HYDROCHLORIDE
     Indication: ABDOMINAL DISCOMFORT
     Dates: start: 20131215, end: 20131216
  4. TEGRETOL [Suspect]
     Active Substance: CARBAMAZEPINE

REACTIONS (1)
  - Hepatic failure [None]

NARRATIVE: CASE EVENT DATE: 20131228
